FAERS Safety Report 4809883-4 (Version None)
Quarter: 2005Q4

REPORT INFORMATION
  Report Type: 
  Country: None (occurrence: None)
  Receive Date: 20051024
  Receipt Date: 20051012
  Transmission Date: 20060501
  Serious: Yes (Hospitalization)
  Sender: FDA-Public Use
  Company Number: 2005141681

PATIENT
  Age: 56 Year
  Sex: Female

DRUGS (4)
  1. BEXTRA [Suspect]
     Indication: ARTHRALGIA
     Dosage: 20 MG (20 MG, 1 IN 1 D), ORAL
     Route: 048
     Dates: start: 20030101, end: 20050407
  2. CELEBREX [Suspect]
     Indication: ARTHRALGIA
  3. LIPITOR [Concomitant]
  4. VIOXX [Concomitant]

REACTIONS (6)
  - ARTHRALGIA [None]
  - ARTHROPATHY [None]
  - DIFFICULTY IN WALKING [None]
  - DRUG EFFECT DECREASED [None]
  - GASTROOESOPHAGEAL REFLUX DISEASE [None]
  - HYPERTENSION [None]
